FAERS Safety Report 9928851 (Version 6)
Quarter: 2014Q2

REPORT INFORMATION
  Report Type: Report from Study
  Country: FR (occurrence: FR)
  Receive Date: 20140227
  Receipt Date: 20140425
  Transmission Date: 20141212
  Serious: Yes (Hospitalization)
  Sender: FDA-Public Use
  Company Number: FR-ROCHE-1350778

PATIENT
  Age: 67 Year
  Sex: Female
  Weight: 67 kg

DRUGS (17)
  1. VEMURAFENIB [Suspect]
     Indication: METASTATIC MALIGNANT MELANOMA
     Route: 048
     Dates: start: 20140110, end: 20140213
  2. VEMURAFENIB [Suspect]
     Dosage: REDUCED DOSE
     Route: 048
  3. SMECTA [Concomitant]
     Indication: DIARRHOEA
     Route: 048
     Dates: start: 20140117, end: 20140131
  4. LEVOTHYROX [Concomitant]
     Indication: HYPOTHYROIDISM
     Route: 048
     Dates: start: 1999
  5. ISOPTINE [Concomitant]
     Indication: HYPERTENSION
     Route: 048
     Dates: start: 2010
  6. INNOHEP [Concomitant]
     Indication: PULMONARY EMBOLISM
     Route: 058
     Dates: start: 20131104
  7. OXYCONTIN [Concomitant]
     Indication: GROIN PAIN
     Route: 048
     Dates: start: 20131113, end: 201402
  8. LYRICA [Concomitant]
     Indication: GROIN PAIN
     Route: 048
     Dates: start: 20131210
  9. ALPRAZOLAM [Concomitant]
     Indication: ANXIETY
     Route: 048
     Dates: start: 2009
  10. OFLOXACIN [Concomitant]
     Indication: URINARY TRACT INFECTION
     Dosage: REPORTED AS : OFLAXACINE
     Route: 048
     Dates: start: 20140117, end: 20140125
  11. DOLIPRANE [Concomitant]
     Indication: GROIN PAIN
     Route: 048
     Dates: start: 20131212
  12. METOCLOPRAMIDE [Concomitant]
     Indication: NAUSEA
     Route: 048
     Dates: start: 20131212, end: 20140402
  13. DEXERYL (FRANCE) [Concomitant]
     Indication: RASH
     Route: 061
     Dates: start: 20140124
  14. DIFFU K [Concomitant]
     Indication: HYPOKALAEMIA
     Route: 048
     Dates: start: 20140110
  15. ORAMORPH [Concomitant]
     Indication: GROIN PAIN
     Route: 048
     Dates: start: 20140110
  16. COBIMETINIB [Suspect]
     Indication: METASTATIC MALIGNANT MELANOMA
     Route: 048
     Dates: start: 20140110, end: 20140213
  17. COBIMETINIB [Suspect]
     Dosage: REDUCED DOSE
     Route: 048

REACTIONS (1)
  - Dehydration [Recovered/Resolved]
